FAERS Safety Report 9515974 (Version 1)
Quarter: 2013Q3

REPORT INFORMATION
  Report Type: Spontaneous
  Country: US (occurrence: US)
  Receive Date: 20130911
  Receipt Date: 20130911
  Transmission Date: 20140515
  Serious: No
  Sender: FDA-Public Use
  Company Number: US-BAYER-2013-104215

PATIENT
  Age: 69 Year
  Sex: Male

DRUGS (2)
  1. AVELOX [Suspect]
  2. CIPRO [Suspect]

REACTIONS (1)
  - Hypersensitivity [None]
